FAERS Safety Report 10585531 (Version 1)
Quarter: 2014Q4

REPORT INFORMATION
  Report Type: Spontaneous
  Country: DE (occurrence: DE)
  Receive Date: 20141114
  Receipt Date: 20141114
  Transmission Date: 20150529
  Serious: Yes (Other)
  Sender: FDA-Public Use
  Company Number: DE-MYLANLABS-2014M1009885

PATIENT

DRUGS (2)
  1. TRIMIPRAMINE MALEATE. [Concomitant]
     Active Substance: TRIMIPRAMINE MALEATE
     Indication: SLEEP DISORDER
     Dosage: UNK
  2. SUMATRIPTAN DURA 50 MG FILMTABLETTEN [Suspect]
     Active Substance: SUMATRIPTAN
     Indication: MIGRAINE
     Dosage: 50 MG, QD (1 TABLET)
     Route: 048
     Dates: start: 20141031, end: 20141031

REACTIONS (4)
  - Haemorrhage subcutaneous [Recovering/Resolving]
  - Eye haemorrhage [Recovering/Resolving]
  - Nausea [Recovered/Resolved]
  - Periorbital contusion [Recovering/Resolving]

NARRATIVE: CASE EVENT DATE: 20141031
